FAERS Safety Report 8783575 (Version 1)
Quarter: 2012Q4

REPORT INFORMATION
  Report Type: Report from Study
  Country: US (occurrence: US)
  Receive Date: 20120913
  Receipt Date: 20120913
  Transmission Date: 20130627
  Serious: No
  Sender: FDA-Public Use
  Company Number: US-VERTEX PHARMACEUTICAL INC.-AE-2012-009128

PATIENT
  Age: 60 Year
  Sex: Male

DRUGS (6)
  1. INCIVEK [Suspect]
     Indication: HEPATITIS C
     Route: 048
  2. PEGASYS [Concomitant]
  3. RIBAVIRIN [Concomitant]
  4. ALLEGRA [Concomitant]
  5. ANTIHISTAMIN [Concomitant]
  6. TOPICAL CREAMS [Concomitant]

REACTIONS (3)
  - Depressed mood [Not Recovered/Not Resolved]
  - Rash [Unknown]
  - Anal pruritus [Not Recovered/Not Resolved]
